FAERS Safety Report 7204984-8 (Version None)
Quarter: 2010Q4

REPORT INFORMATION
  Report Type: 
  Country: None (occurrence: None)
  Receive Date: 20101230
  Receipt Date: 20101222
  Transmission Date: 20110411
  Serious: Yes (Death, Hospitalization)
  Sender: FDA-Public Use
  Company Number: US-AMGEN-USASP2010010811

PATIENT

DRUGS (1)
  1. ENBREL [Suspect]
     Dates: start: 20080823

REACTIONS (4)
  - CLEFT PALATE [None]
  - CYTOGENETIC ABNORMALITY [None]
  - DEATH [None]
  - HYPOPLASTIC LEFT HEART SYNDROME [None]
